FAERS Safety Report 21423962 (Version 1)
Quarter: 2022Q4

REPORT INFORMATION
  Report Type: Spontaneous
  Country: US (occurrence: US)
  Receive Date: 20221007
  Receipt Date: 20221007
  Transmission Date: 20230113
  Serious: No
  Sender: FDA-Public Use
  Company Number: US-UPSHER-SMITH LABORATORIES, LLC-2022USL00510

PATIENT
  Sex: Female
  Weight: 72 kg

DRUGS (7)
  1. ISOTRETINOIN [Suspect]
     Active Substance: ISOTRETINOIN
     Dosage: 40 MG
     Route: 048
     Dates: start: 20220104, end: 2022
  2. ISOTRETINOIN [Suspect]
     Active Substance: ISOTRETINOIN
     Dosage: 60 MG
     Route: 048
     Dates: start: 2022, end: 2022
  3. ISOTRETINOIN [Suspect]
     Active Substance: ISOTRETINOIN
     Dosage: 40 MG
     Route: 048
     Dates: start: 2022, end: 2022
  4. ISOTRETINOIN [Suspect]
     Active Substance: ISOTRETINOIN
     Dosage: 30 MG, 1X/DAY
     Route: 048
     Dates: start: 2022, end: 2022
  5. SPRINTEC [Concomitant]
     Active Substance: ETHINYL ESTRADIOL\NORGESTIMATE
     Dosage: 1 TABLETS, 1X/DAY
     Route: 048
  6. TRETINOIN [Concomitant]
     Active Substance: TRETINOIN
     Dosage: A PEA SIZED AMOUNT TO THE ENTIRE FACE AT BEDTIME
     Route: 061
  7. HYDROCORTISONE [Concomitant]
     Active Substance: HYDROCORTISONE
     Dosage: APPLY A THIN LAYER TO THE AFFECTED AREA(S) ON THE LIPS, 2X/DAY
     Route: 061

REACTIONS (2)
  - Pigmentation lip [Recovering/Resolving]
  - Cheilitis [Recovering/Resolving]

NARRATIVE: CASE EVENT DATE: 20220101
